FAERS Safety Report 7940699-6 (Version None)
Quarter: 2011Q4

REPORT INFORMATION
  Report Type: 
  Country: None (occurrence: None)
  Receive Date: 20111114
  Receipt Date: 20110715
  Transmission Date: 20120403
  Serious: Yes (Hospitalization)
  Sender: FDA-Public Use
  Company Number: 2011S1000459

PATIENT
  Age: 57 Year
  Sex: Male
  Weight: 95.45 kg

DRUGS (11)
  1. PERCOCET [Concomitant]
  2. VITAMIN E [Concomitant]
  3. VANCOMYCIN [Concomitant]
  4. XANAX [Concomitant]
  5. METFORMIN HCL [Concomitant]
  6. CUBICIN [Suspect]
     Indication: INFECTION
     Dosage: 8 MG/KG;QD;IV
     Route: 042
     Dates: start: 20110609, end: 20110704
  7. MULTI-VITAMIN [Concomitant]
  8. ASPIRIN [Concomitant]
  9. GLYBURIDE [Concomitant]
  10. LIPITOR [Concomitant]
  11. OMEPRAZOLE [Concomitant]

REACTIONS (1)
  - INTERSTITIAL LUNG DISEASE [None]
